FAERS Safety Report 4365444-5 (Version None)
Quarter: 2004Q2

REPORT INFORMATION
  Report Type: 
  Country: None (occurrence: None)
  Receive Date: 20040520
  Receipt Date: 20040510
  Transmission Date: 20050107
  Serious: No
  Sender: FDA-Public Use
  Company Number: 2004UW09643

PATIENT
  Age: 70 Year
  Sex: Female

DRUGS (3)
  1. ARIMIDEX [Suspect]
     Dosage: 1 MG DAILY PO
     Route: 048
     Dates: start: 20040201
  2. DIAZIDE [Concomitant]
  3. ACE INHIBITOR [Concomitant]

REACTIONS (1)
  - DEAFNESS UNILATERAL [None]
